FAERS Safety Report 14731242 (Version 2)
Quarter: 2018Q3

REPORT INFORMATION
  Report Type: Other
  Country: US (occurrence: US)
  Receive Date: 20180406
  Receipt Date: 20180831
  Transmission Date: 20181010
  Serious: Yes (Life-Threatening, Hospitalization)
  Sender: FDA-Public Use
  Company Number: US-NOSTRUM LABORATORIES, INC.-2045303

PATIENT
  Age: 67 Year
  Sex: Male

DRUGS (1)
  1. METFORMIN HYDROCHLORIDE EXTENDED?RELEASE [Suspect]
     Active Substance: METFORMIN HYDROCHLORIDE
     Indication: TYPE 2 DIABETES MELLITUS
     Route: 048

REACTIONS (3)
  - Lactic acidosis [Recovered/Resolved]
  - Hypertension [None]
  - Type 2 diabetes mellitus [Unknown]
